FAERS Safety Report 11335005 (Version 1)
Quarter: 2015Q3

REPORT INFORMATION
  Report Type: Spontaneous
  Country: US (occurrence: None)
  Receive Date: 20150731
  Receipt Date: 20150731
  Transmission Date: 20151125
  Serious: No
  Sender: FDA-Public Use
  Company Number: None

PATIENT
  Age: 27 Year
  Sex: Female
  Weight: 81.19 kg

DRUGS (2)
  1. LISTERINE TOTAL CARE ANTICAVITY - FRESH MINT [Suspect]
     Active Substance: SODIUM FLUORIDE
     Indication: PROPHYLAXIS
     Dosage: 10 ML, SWISHED IN MOUTH
     Route: 048
     Dates: start: 20150718, end: 20150727
  2. LISTERINE TOTAL CARE ANTICAVITY - FRESH MINT [Suspect]
     Active Substance: SODIUM FLUORIDE
     Indication: DENTAL DISORDER PROPHYLAXIS
     Dosage: 10 ML, SWISHED IN MOUTH
     Route: 048
     Dates: start: 20150718, end: 20150727

REACTIONS (4)
  - Ageusia [None]
  - Oral mucosal exfoliation [None]
  - Hypoaesthesia oral [None]
  - Oral discomfort [None]

NARRATIVE: CASE EVENT DATE: 20150727
